FAERS Safety Report 7936248-9 (Version None)
Quarter: 2011Q4

REPORT INFORMATION
  Report Type: 
  Country: None (occurrence: None)
  Receive Date: 20111123
  Receipt Date: 20111116
  Transmission Date: 20120403
  Serious: Yes (Other)
  Sender: FDA-Public Use
  Company Number: US-JNJFOC-20110810536

PATIENT
  Sex: Female

DRUGS (2)
  1. REMICADE [Suspect]
     Indication: PSORIASIS
     Route: 042
     Dates: start: 20090501, end: 20110601
  2. REMICADE [Suspect]
     Route: 042
     Dates: start: 20090301, end: 20110822

REACTIONS (1)
  - LUPUS-LIKE SYNDROME [None]
